FAERS Safety Report 9451211 (Version 1)
Quarter: 2013Q3

REPORT INFORMATION
  Report Type: Spontaneous
  Country: None (occurrence: DE)
  Receive Date: 20130809
  Receipt Date: 20130809
  Transmission Date: 20140515
  Serious: Yes (Other)
  Sender: FDA-Public Use
  Company Number: DE-TEVA-405981GER

PATIENT
  Age: 58 Year
  Sex: Female
  Weight: 61 kg

DRUGS (3)
  1. BISOPROLOL [Suspect]
     Indication: HYPERTENSION
     Dosage: 2.5 MILLIGRAM DAILY; 1-0-0
     Route: 048
     Dates: start: 20130219, end: 20130730
  2. L-THYROXIN [Interacting]
     Indication: HYPOTHYROIDISM
     Dosage: 88 MICROGRAM DAILY; 1-0-0, 88 MICROGRAM DAILY
     Route: 048
     Dates: start: 20120801, end: 20130730
  3. VALSACOR [Interacting]
     Indication: HYPERTENSION
     Dosage: 40 MILLIGRAM DAILY;
     Route: 048
     Dates: start: 20121113

REACTIONS (7)
  - Cerebral ischaemia [Unknown]
  - Encephalitis [Unknown]
  - Hyposmia [Not Recovered/Not Resolved]
  - Hypogeusia [Not Recovered/Not Resolved]
  - Parosmia [Not Recovered/Not Resolved]
  - Dysgeusia [Not Recovered/Not Resolved]
  - Drug interaction [Unknown]
